FAERS Safety Report 7222575-X (Version None)
Quarter: 2010Q4

REPORT INFORMATION
  Report Type: 
  Country: None (occurrence: None)
  Receive Date: 20101126
  Receipt Date: 20100816
  Transmission Date: 20110411
  Serious: No
  Sender: FDA-Public Use
  Company Number: 313226

PATIENT
  Age: 65 Year
  Sex: Male

DRUGS (2)
  1. VICTOZA [Suspect]
     Indication: PRODUCT USED FOR UNKNOWN INDICATION
     Dosage: (1.2 MG, QD, SUBCUTANEOUS) (0.6 MG, QD, SUBCUTANEOUS)
     Route: 058
     Dates: start: 20100506, end: 20100506
  2. VICTOZA [Suspect]
     Indication: PRODUCT USED FOR UNKNOWN INDICATION
     Dosage: (1.2 MG, QD, SUBCUTANEOUS) (0.6 MG, QD, SUBCUTANEOUS)
     Route: 058
     Dates: start: 20100507, end: 20100512

REACTIONS (1)
  - PALPITATIONS [None]
